FAERS Safety Report 16846600 (Version 1)
Quarter: 2019Q3

REPORT INFORMATION
  Report Type: Spontaneous
  Country: FR (occurrence: FR)
  Receive Date: 20190924
  Receipt Date: 20190924
  Transmission Date: 20191005
  Serious: Yes (Disabling)
  Sender: FDA-Public Use
  Company Number: FR-009507513-1909FRA006068

PATIENT
  Age: 77 Year
  Sex: Male

DRUGS (8)
  1. KEPPRA [Concomitant]
     Active Substance: LEVETIRACETAM
     Dosage: UNK
  2. COAPROVEL [Concomitant]
     Active Substance: HYDROCHLOROTHIAZIDE\IRBESARTAN
     Dosage: UNK
  3. KARDEGIC [Suspect]
     Active Substance: ASPIRIN DL-LYSINE
     Indication: MYOCARDIAL INFARCTION
     Dosage: 1 DOSAGE FORM, QD
     Route: 048
     Dates: start: 2000
  4. SEROPLEX [Suspect]
     Active Substance: ESCITALOPRAM OXALATE
     Indication: DEMENTIA
     Dosage: 1 DOSAGE FORM, QD
     Route: 048
     Dates: start: 2011, end: 20141116
  5. TENORMINE [Concomitant]
     Active Substance: ATENOLOL
     Dosage: UNK
  6. TIAPRIDAL [Concomitant]
     Active Substance: TIAPRIDE HYDROCHLORIDE
     Dosage: UNK
  7. INEGY [Suspect]
     Active Substance: EZETIMIBE\SIMVASTATIN
     Dosage: UNK
  8. NEXIUM [Suspect]
     Active Substance: ESOMEPRAZOLE MAGNESIUM
     Indication: PROPHYLAXIS AGAINST GASTROINTESTINAL ULCER
     Dosage: 1 DOSAGE FORM, QD
     Route: 048
     Dates: start: 2007, end: 20141116

REACTIONS (2)
  - Subdural haematoma [Recovered/Resolved with Sequelae]
  - Cerebral haematoma [Recovered/Resolved with Sequelae]

NARRATIVE: CASE EVENT DATE: 20141112
